FAERS Safety Report 11863987 (Version 1)
Quarter: 2015Q4

REPORT INFORMATION
  Report Type: Spontaneous
  Country: US (occurrence: US)
  Receive Date: 20151223
  Receipt Date: 20151223
  Transmission Date: 20160305
  Serious: Yes (Other)
  Sender: FDA-Public Use
  Company Number: US-GLAXOSMITHKLINE-US2015180239

PATIENT
  Sex: Female

DRUGS (5)
  1. LISINOPRIL. [Suspect]
     Active Substance: LISINOPRIL
  2. ASPIRIN (BABY) [Concomitant]
     Active Substance: ASPIRIN
     Dosage: UNK
  3. COREG CR [Suspect]
     Active Substance: CARVEDILOL PHOSPHATE
     Indication: BLOOD PRESSURE INCREASED
     Dosage: 40 MG, QD
     Route: 048
     Dates: start: 201507
  4. SYNTHROID [Concomitant]
     Active Substance: LEVOTHYROXINE SODIUM
  5. COREG CR [Suspect]
     Active Substance: CARVEDILOL PHOSPHATE
     Dosage: 20 MG, QD

REACTIONS (12)
  - Insomnia [Recovered/Resolved]
  - Mental impairment [Recovered/Resolved]
  - Impaired driving ability [Recovered/Resolved]
  - Pruritus [Unknown]
  - Dizziness [Recovered/Resolved]
  - Rash [Not Recovered/Not Resolved]
  - Skin disorder [Unknown]
  - Incorrect dose administered [Unknown]
  - Potentiating drug interaction [Unknown]
  - Hypersensitivity [Unknown]
  - Disturbance in attention [Recovered/Resolved]
  - Sleep disorder [Recovered/Resolved]
